FAERS Safety Report 23863063 (Version 1)
Quarter: 2024Q2

REPORT INFORMATION
  Report Type: Spontaneous
  Country: US (occurrence: US)
  Receive Date: 20240516
  Receipt Date: 20240516
  Transmission Date: 20240716
  Serious: No
  Sender: FDA-Public Use
  Company Number: US-PFIZER INC-PV202400063138

PATIENT
  Age: 58 Year
  Sex: Male

DRUGS (9)
  1. ELREXFIO [Suspect]
     Active Substance: ELRANATAMAB-BCMM
     Dosage: UNK
     Route: 058
     Dates: start: 202201
  2. KYPROLIS [Concomitant]
     Active Substance: CARFILZOMIB
     Dosage: UNK
     Dates: start: 202106
  3. POMALYST [Concomitant]
     Active Substance: POMALIDOMIDE
     Dosage: UNK
     Dates: start: 202105
  4. DARZALEX [Concomitant]
     Active Substance: DARATUMUMAB
     Dosage: UNK
     Dates: start: 202104
  5. VELCADE [Concomitant]
     Active Substance: BORTEZOMIB
  6. NINLARO [Concomitant]
     Active Substance: IXAZOMIB CITRATE
  7. THALOMID [Concomitant]
     Active Substance: THALIDOMIDE
  8. REVLIMID [Concomitant]
     Active Substance: LENALIDOMIDE
  9. ISATUXIMAB [Concomitant]
     Active Substance: ISATUXIMAB

REACTIONS (1)
  - Neoplasm recurrence [Unknown]
